FAERS Safety Report 15811391 (Version 1)
Quarter: 2019Q1

REPORT INFORMATION
  Report Type: Spontaneous
  Country: CA (occurrence: CA)
  Receive Date: 20190111
  Receipt Date: 20190111
  Transmission Date: 20190417
  Serious: Yes (Hospitalization, Other)
  Sender: FDA-Public Use
  Company Number: CA-UCBSA-2019000959

PATIENT
  Age: 14 Month
  Sex: Female
  Weight: 8 kg

DRUGS (1)
  1. KEPPRA [Suspect]
     Active Substance: LEVETIRACETAM
     Indication: GENERALISED TONIC-CLONIC SEIZURE
     Dosage: 95 MG, 2X/DAY (BID)
     Route: 048

REACTIONS (5)
  - Emotional disorder [Recovered/Resolved]
  - Moaning [Recovered/Resolved]
  - Crying [Recovered/Resolved]
  - Childhood psychosis [Recovered/Resolved]
  - Irritability [Recovered/Resolved]
